FAERS Safety Report 24167683 (Version 1)
Quarter: 2024Q3

REPORT INFORMATION
  Report Type: Spontaneous
  Country: CN (occurrence: CN)
  Receive Date: 20240802
  Receipt Date: 20240802
  Transmission Date: 20241017
  Serious: Yes (Other)
  Sender: GALDERMA
  Company Number: CN-GALDERMA-CN2024011592

PATIENT

DRUGS (1)
  1. DIFFERIN [Suspect]
     Active Substance: ADAPALENE
     Indication: Acne
     Dosage: 1 GRAM, QD
     Route: 061
     Dates: start: 20240713, end: 20240715

REACTIONS (4)
  - Application site pruritus [Unknown]
  - Application site erythema [Unknown]
  - Pain of skin [Unknown]
  - Dermatitis contact [Not Recovered/Not Resolved]

NARRATIVE: CASE EVENT DATE: 20240715
